FAERS Safety Report 15563107 (Version 1)
Quarter: 2018Q4

REPORT INFORMATION
  Report Type: Spontaneous
  Country: US (occurrence: US)
  Receive Date: 20181029
  Receipt Date: 20181029
  Transmission Date: 20190205
  Serious: No
  Sender: FDA-Public Use
  Company Number: US-NEXGEN PHARMA, INC.-2058190

PATIENT
  Age: 69 Year
  Sex: Female

DRUGS (1)
  1. CHENODIOL TABLETS [Suspect]
     Active Substance: CHENODIOL
     Route: 048
     Dates: start: 20130727

REACTIONS (1)
  - Oral infection [Recovered/Resolved]
